FAERS Safety Report 15191567 (Version 2)
Quarter: 2018Q3

REPORT INFORMATION
  Report Type: Spontaneous
  Country: SK (occurrence: SK)
  Receive Date: 20180724
  Receipt Date: 20180823
  Transmission Date: 20181010
  Serious: Yes (Death, Hospitalization)
  Sender: FDA-Public Use
  Company Number: SK-BAYER-2018-135838

PATIENT
  Age: 68 Year
  Sex: Female

DRUGS (3)
  1. ACLIDINIUM [Concomitant]
     Active Substance: ACLIDINIUM BROMIDE
     Dosage: 322 MG, QD
  2. ATROVENT [Concomitant]
     Active Substance: IPRATROPIUM BROMIDE
     Dosage: DAILY DOSE 20 ?G
  3. ULTRAVIST [Suspect]
     Active Substance: IOPROMIDE
     Indication: COMPUTERISED TOMOGRAM THORAX
     Dosage: UNK UNK, ONCE
     Dates: start: 20180718, end: 20180718

REACTIONS (5)
  - Chest pain [Not Recovered/Not Resolved]
  - Dyspnoea [None]
  - Trismus [None]
  - Cyanosis [None]
  - Loss of consciousness [Fatal]

NARRATIVE: CASE EVENT DATE: 20180718
